FAERS Safety Report 4780959-3 (Version None)
Quarter: 2005Q3

REPORT INFORMATION
  Report Type: 
  Country: None (occurrence: None)
  Receive Date: 20050926
  Receipt Date: 20050926
  Transmission Date: 20060218
  Serious: Yes (Other)
  Sender: FDA-Public Use
  Company Number: None

PATIENT
  Age: 51 Year
  Sex: Male
  Weight: 95.2554 kg

DRUGS (2)
  1. FENTANYL [Suspect]
     Indication: BACK PAIN
     Dosage: 1 PATCH EVERY 3 DAYS TOP
     Route: 061
     Dates: start: 20050810, end: 20050919
  2. FENTANYL [Suspect]
     Indication: INTERVERTEBRAL DISC PROTRUSION
     Dosage: 1 PATCH EVERY 3 DAYS TOP
     Route: 061
     Dates: start: 20050810, end: 20050919

REACTIONS (6)
  - APPLICATION SITE ERYTHEMA [None]
  - ASTHENIA [None]
  - HEADACHE [None]
  - PAIN [None]
  - PHARMACEUTICAL PRODUCT COMPLAINT [None]
  - VOMITING [None]
